FAERS Safety Report 6358435-6 (Version None)
Quarter: 2009Q3

REPORT INFORMATION
  Report Type: 
  Country: None (occurrence: None)
  Receive Date: 20090911
  Receipt Date: 20090827
  Transmission Date: 20100115
  Serious: Yes (Other)
  Sender: FDA-Public Use
  Company Number: 2009AL005649

PATIENT
  Age: 48 Year
  Sex: Male

DRUGS (2)
  1. CARBAMAZEPINE [Suspect]
     Indication: PETIT MAL EPILEPSY
     Dosage: 200 MG; QD; UNK
  2. PHENOBARBITAL TAB [Suspect]
     Indication: PETIT MAL EPILEPSY

REACTIONS (5)
  - BRONCHIAL WALL THICKENING [None]
  - BRONCHIECTASIS [None]
  - CARBON MONOXIDE DIFFUSING CAPACITY DECREASED [None]
  - INTERSTITIAL LUNG DISEASE [None]
  - RESPIRATORY FAILURE [None]
